FAERS Safety Report 11802942 (Version 2)
Quarter: 2015Q4

REPORT INFORMATION
  Report Type: Spontaneous
  Country: US (occurrence: US)
  Receive Date: 20151204
  Receipt Date: 20151216
  Transmission Date: 20160305
  Serious: Yes (Other)
  Sender: FDA-Public Use
  Company Number: US-BRISTOL-MYERS SQUIBB COMPANY-BMS-2015-084053

PATIENT
  Age: 5 Decade
  Sex: Male

DRUGS (5)
  1. IRINOTECAN [Suspect]
     Active Substance: IRINOTECAN
     Indication: METASTASES TO LUNG
     Dosage: 150 MG, Q2WK
     Route: 065
     Dates: start: 201412
  2. CETUXIMAB [Suspect]
     Active Substance: CETUXIMAB
     Indication: METASTASES TO LUNG
     Dosage: 400 MG, Q2WK
     Route: 065
     Dates: start: 201412
  3. RAMUCIRUMAB [Suspect]
     Active Substance: RAMUCIRUMAB
     Indication: METASTASES TO LUNG
     Dosage: 6 MG/KG, Q2WK
     Route: 065
     Dates: start: 201412
  4. CETUXIMAB [Suspect]
     Active Substance: CETUXIMAB
     Indication: RECTAL ADENOCARCINOMA
  5. IRINOTECAN [Suspect]
     Active Substance: IRINOTECAN
     Indication: RECTAL ADENOCARCINOMA

REACTIONS (1)
  - Haemangioma [Unknown]

NARRATIVE: CASE EVENT DATE: 201501
